FAERS Safety Report 5398265-5 (Version None)
Quarter: 2007Q3

REPORT INFORMATION
  Report Type: 
  Country: None (occurrence: None)
  Receive Date: 20070726
  Receipt Date: 20070514
  Transmission Date: 20080115
  Serious: Yes (Death, Hospitalization)
  Sender: FDA-Public Use
  Company Number: JP-NOVOPROD-263631

PATIENT
  Sex: Male
  Weight: 65 kg

DRUGS (8)
  1. NOVOLOG MIX 70/30 [Suspect]
     Indication: INSULIN-REQUIRING TYPE II DIABETES MELLITUS
     Dosage: 12 IU, QD
     Route: 058
     Dates: start: 20070207, end: 20070315
  2. ADALAT [Concomitant]
     Dosage: 40 MG, QD
     Route: 048
     Dates: start: 20041104, end: 20070412
  3. DIOVAN                             /01319601/ [Concomitant]
     Dosage: 160 MG, QD
     Route: 048
     Dates: start: 20050113, end: 20070422
  4. TENORMIN [Concomitant]
     Dosage: 50 MG, QD
     Route: 048
     Dates: start: 20050310, end: 20070422
  5. TORSEMIDE [Concomitant]
     Dosage: 8 MG, QD
     Route: 048
     Dates: start: 20050512, end: 20070412
  6. GLUCOBAY [Concomitant]
     Dosage: 150 MG, QD
     Route: 048
     Dates: start: 20060911, end: 20070316
  7. ASPARA-CA [Concomitant]
     Dosage: 800 MG, QD
     Route: 048
     Dates: start: 20070307, end: 20070412
  8. DAONIL [Concomitant]

REACTIONS (2)
  - DECREASED APPETITE [None]
  - MALAISE [None]
